FAERS Safety Report 10432989 (Version 1)
Quarter: 2014Q3

REPORT INFORMATION
  Report Type: Spontaneous
  Country: HU (occurrence: HU)
  Receive Date: 20140905
  Receipt Date: 20140905
  Transmission Date: 20150326
  Serious: Yes (Other)
  Sender: FDA-Public Use
  Company Number: PHHY2014HU109017

PATIENT
  Age: 5 Year
  Sex: Male

DRUGS (3)
  1. VENTOLINE EVOHALER [Concomitant]
     Indication: ASTHMA
     Dosage: 100 UG
     Route: 055
  2. CETIRIZIN HEXAL [Suspect]
     Active Substance: CETIRIZINE HYDROCHLORIDE
     Indication: RHINITIS ALLERGIC
     Route: 048
     Dates: start: 20140515, end: 20140601
  3. FLIXOTIDE EVOHALER [Concomitant]
     Active Substance: FLUTICASONE PROPIONATE
     Indication: ASTHMA
     Dosage: 125 UG, BID
     Route: 055

REACTIONS (5)
  - Confusional state [Recovered/Resolved]
  - Amnesia [Recovered/Resolved]
  - Dyskinesia [Recovered/Resolved]
  - Somnambulism [Recovered/Resolved]
  - Insomnia [Recovered/Resolved]

NARRATIVE: CASE EVENT DATE: 20140522
